FAERS Safety Report 12936175 (Version 1)
Quarter: 2016Q4

REPORT INFORMATION
  Report Type: Spontaneous
  Country: US (occurrence: US)
  Receive Date: 20161112
  Receipt Date: 20161112
  Transmission Date: 20170207
  Serious: Yes (Death)
  Sender: FDA-Public Use
  Company Number: None

PATIENT
  Age: 55 Year
  Sex: Female

DRUGS (4)
  1. CAPECITABINE TAB 500MG [Suspect]
     Active Substance: CAPECITABINE
     Indication: METASTASES TO LUNG
     Dosage: 3 TABLETS DAYS 1 THRU 14 PO
     Route: 048
     Dates: start: 20151208
  2. CAPECITABINE TAB 500MG [Suspect]
     Active Substance: CAPECITABINE
     Indication: METASTASES TO CENTRAL NERVOUS SYSTEM
     Dosage: 3 TABLETS DAYS 1 THRU 14 PO
     Route: 048
     Dates: start: 20151208
  3. CAPECITABINE TAB 500MG [Suspect]
     Active Substance: CAPECITABINE
     Indication: BREAST CANCER FEMALE
     Dosage: 3 TABLETS DAYS 1 THRU 14 PO
     Route: 048
     Dates: start: 20151208
  4. CAPECITABINE TAB 500MG [Suspect]
     Active Substance: CAPECITABINE
     Indication: METASTASES TO BONE MARROW
     Dosage: 3 TABLETS DAYS 1 THRU 14 PO
     Route: 048
     Dates: start: 20151208

REACTIONS (1)
  - Death [None]

NARRATIVE: CASE EVENT DATE: 20161112
